FAERS Safety Report 9616146 (Version 6)
Quarter: 2014Q4

REPORT INFORMATION
  Report Type: Report from Study
  Country: JP (occurrence: JP)
  Receive Date: 20131011
  Receipt Date: 20141216
  Transmission Date: 20150529
  Serious: Yes (Hospitalization, Other)
  Sender: FDA-Public Use
  Company Number: JP-MERCK-2012SP021899

PATIENT
  Age: 63 Year
  Sex: Female
  Weight: 48 kg

DRUGS (48)
  1. PREDNISOLONE. [Concomitant]
     Active Substance: PREDNISOLONE
     Indication: HYPOGLYCAEMIA
     Dosage: DIVIDED DOSE FREQUENCY UNKNOWN DURING 4-8MG/DAY
     Route: 048
  2. FUROSEMIDE. [Concomitant]
     Active Substance: FUROSEMIDE
     Dosage: 80-120MG/ DAY, DIVIDED DOSE FREQUENCY UNKNOWN
     Route: 048
  3. RENIVACE [Concomitant]
     Active Substance: ENALAPRIL
     Indication: HYPERTENSION
     Dosage: DIVIDED DOSE FREQUENCY UNKOWN, DURING 5-10 MG PER DAY
     Route: 048
     Dates: start: 201108
  4. OLMETEC [Concomitant]
     Active Substance: OLMESARTAN MEDOXOMIL
     Indication: HYPERTENSION
     Dosage: 40 MG, DIVIDED DOSE FREQUENCY UNKNOWN
     Route: 048
     Dates: start: 201108, end: 20120530
  5. RASILEZ [Concomitant]
     Active Substance: ALISKIREN
     Indication: HYPERTENSION
     Dosage: DIVIDED DOSE FREQUENCY UNKNOWN 0-150 MG/DAY
     Route: 048
     Dates: start: 201111
  6. DEPAS [Concomitant]
     Active Substance: ETIZOLAM
     Indication: ANXIETY
     Dosage: DIVIDED DOSE FREQUENCY UNKNOWN
     Route: 048
     Dates: start: 20120620
  7. SOLANAX [Concomitant]
     Active Substance: ALPRAZOLAM
     Indication: ANXIETY
     Dosage: DEVIDED DOSE FREQUENCY UNKNOWN
     Route: 048
     Dates: start: 20120620
  8. NIFEDIPINE. [Concomitant]
     Active Substance: NIFEDIPINE
     Indication: HYPERTENSION
     Dosage: 1 0-40MG, DIVIDED DOSE FREQUENCY UNKNOWN
     Route: 048
     Dates: start: 201106, end: 201111
  9. DIAZOXIDE [Suspect]
     Active Substance: DIAZOXIDE
     Indication: HYPOGLYCAEMIA
     Dosage: 25MG: IN MORNING AND DAYTIME, 50MG: IN EVENING.
     Route: 048
     Dates: start: 20110120, end: 20110523
  10. DIAZOXIDE [Suspect]
     Active Substance: DIAZOXIDE
     Dosage: 25MG:IN MORNING,50MG IN EVENING, 75 MG PER DAY
     Route: 048
     Dates: start: 20120307
  11. ZOPICOOL [Concomitant]
     Active Substance: ZOPICLONE
     Indication: INSOMNIA
     Dosage: DIVIDED DOSE FREQUENCY UNKNOWN
     Route: 048
     Dates: start: 20120222
  12. PREDNISOLONE. [Concomitant]
     Active Substance: PREDNISOLONE
     Indication: HYPOGLYCAEMIA
     Dosage: 2-5 MG/DAY, DIVIDED DOSE FREQUENCY UNKNOWN
     Route: 048
  13. REZALTAS [Concomitant]
     Active Substance: AZELNIDIPINE\OLMESARTAN MEDOXOMIL
     Indication: HYPERTENSION
     Dosage: O: 20 MG, A: 16 MG, DIVIDED DOSE FREQUENCY UNKNOWN
     Route: 048
     Dates: start: 20130401
  14. SALOBEL [Concomitant]
     Active Substance: ALLOPURINOL
     Indication: HYPERURICAEMIA
     Dosage: DIVIDED DOSE, FREQUENCY UNKNOWN
     Route: 048
     Dates: end: 20110119
  15. MYSLEE [Concomitant]
     Active Substance: ZOLPIDEM TARTRATE
     Indication: INSOMNIA
     Dosage: DIVIDED DOSE, FREQUENCY UNKNOWN
     Route: 048
     Dates: start: 2007
  16. MUCOSTA [Concomitant]
     Active Substance: REBAMIPIDE
     Indication: HEADACHE
     Dosage: 100 MG, AS NEEDED
     Route: 048
  17. MUCOSTA [Concomitant]
     Active Substance: REBAMIPIDE
     Dosage: 50 MG, AS NEEDED
     Route: 048
  18. DIART [Concomitant]
     Active Substance: AZOSEMIDE
     Indication: OEDEMA
     Dosage: 30-60MG/ DAY, DIVIDED DOSE FREQUENCY UNKNOWN
     Route: 048
     Dates: start: 201106
  19. ALDACTONE [Concomitant]
     Active Substance: SPIRONOLACTONE
     Indication: OEDEMA
     Dosage: 25 MG, UNK
     Route: 048
     Dates: start: 201012, end: 201111
  20. GOODMIN [Concomitant]
     Active Substance: BROTIZOLAM
     Dosage: 0.25 MG, DIVIDED DOSE, FREQUENCY UNKNOWN
     Route: 048
     Dates: start: 2007
  21. PARIET [Concomitant]
     Active Substance: RABEPRAZOLE SODIUM
     Dosage: 10 MG, DIVIDED DOSE, FREQUENCY UNKNOWN
     Route: 048
     Dates: start: 201007
  22. MAGMITT [Concomitant]
     Active Substance: MAGNESIUM OXIDE
     Indication: CONSTIPATION
     Dosage: DIVIDED DOSE, FREQUENCY UNKNOWN
     Route: 048
     Dates: end: 20120119
  23. DOXAZOSIN MESYLATE. [Concomitant]
     Active Substance: DOXAZOSIN MESYLATE
     Dosage: 2-16MG/ DAY, DIVIDED DOSE FREQUENCY UNKNOWN
     Route: 048
  24. LUPRAC [Concomitant]
     Active Substance: TORSEMIDE
     Indication: OEDEMA
     Dosage: DIVIDED DOSE FREQUENCY UNKNOWN
     Route: 048
     Dates: start: 20120829
  25. LENDORMIN [Concomitant]
     Active Substance: BROTIZOLAM
     Indication: INSOMNIA
     Dosage: DIVIDED DOSE FREQUENCY UNKNOWN
     Route: 048
     Dates: start: 20120620
  26. GRAMALIL [Concomitant]
     Active Substance: TIAPRIDE HYDROCHLORIDE
     Indication: INSOMNIA
     Dosage: 25 MG, UNK
     Route: 048
     Dates: start: 201012, end: 201111
  27. PREDNISOLONE. [Concomitant]
     Active Substance: PREDNISOLONE
     Dosage: 2-5 MG/DAY, DIVIDED DOSE, FREQUENCY UNKNOWN
     Route: 048
  28. AM [Concomitant]
     Indication: ABDOMINAL DISCOMFORT
     Dosage: 3.9 G, DIVIDED DOSE, FREQUENCY UNKNOWN
     Route: 048
  29. TAKEPRON [Concomitant]
     Active Substance: LANSOPRAZOLE
     Indication: PROPHYLAXIS AGAINST GASTROINTESTINAL ULCER
     Dosage: DIVIDED DOSE, FREQUENCY UNKNOWN
     Route: 048
     Dates: start: 201012
  30. ZYLORIC [Concomitant]
     Active Substance: ALLOPURINOL
     Indication: HYPERURICAEMIA
     Dosage: 200 MG, DIVIDED DOSE FREQUENCY UNKNOWN
     Route: 048
     Dates: start: 20120722
  31. BEZATOL SR [Concomitant]
     Active Substance: BEZAFIBRATE
     Dosage: DIVIDED DOSE FREQUENCY UNKNOWN, 200-400MG/ DAY
     Route: 048
  32. SENNA [Concomitant]
     Active Substance: SENNA LEAF\SENNOSIDES\SENNOSIDES A AND B
     Indication: CONSTIPATION
     Dosage: DIVIDED DOSE, FREQUENCY UNKNOWN
     Route: 048
  33. BENET [Concomitant]
     Active Substance: RISEDRONIC ACID
     Indication: OSTEOPOROSIS PROPHYLAXIS
     Dosage: 17.5 MG, DIVIDED DOSE, FREQUENCY UNKNOWN, INTERVAL 1 WEEK
     Route: 048
     Dates: start: 201007
  34. LOXONIN [Concomitant]
     Active Substance: LOXOPROFEN SODIUM
     Indication: BACK PAIN
     Dosage: 120 MG,AS NEEDED
     Route: 048
  35. FUROSEMIDE. [Concomitant]
     Active Substance: FUROSEMIDE
     Indication: OEDEMA
     Dosage: 40-80 MG/DAY,DIVIDED DOSE FREQUENCY UNKNOWN
     Route: 048
  36. DOXAZOSIN MESYLATE. [Concomitant]
     Active Substance: DOXAZOSIN MESYLATE
     Indication: HYPERTENSION
     Dosage: DIVIDED DOSE FREQUENCY UNKNOWN 2-12 MG/DAY
     Route: 048
     Dates: start: 201111
  37. ROHYPNOL [Concomitant]
     Active Substance: FLUNITRAZEPAM
     Indication: INSOMNIA
     Dosage: 2 MG, DIVIDED DOSE, FREQUENCY UNKNOWN
     Route: 048
     Dates: start: 2007
  38. GASTER [Concomitant]
     Active Substance: FAMOTIDINE
     Indication: ABDOMINAL DISCOMFORT
     Dosage: DIVIDED DOSE FREQUENCY UNKNOWN
     Route: 048
     Dates: start: 20120307
  39. DIAZOXIDE [Suspect]
     Active Substance: DIAZOXIDE
     Dosage: 25 MG, BID
     Route: 048
     Dates: start: 20110602, end: 20120306
  40. PANALDINE [Concomitant]
     Active Substance: TICLOPIDINE HYDROCHLORIDE
     Indication: PROPHYLAXIS
     Dosage: DIVIDED DOSE, FREQUENCY UNKNOWN
     Route: 048
  41. LOXONIN [Concomitant]
     Active Substance: LOXOPROFEN SODIUM
     Indication: HEADACHE
     Dosage: AS NEEDED, 60-120MG/DAY
     Route: 048
  42. LUPRAC [Concomitant]
     Active Substance: TORSEMIDE
     Dosage: DIVIDED DOSE FREQUENCY UNKNOWN, 4-8MG/ DAY
     Route: 048
  43. BEZATOL SR [Concomitant]
     Active Substance: BEZAFIBRATE
     Indication: DYSLIPIDAEMIA
     Dosage: DIVIDED DOSE FREQUENCY UNKNOWN
     Route: 048
     Dates: start: 20130110
  44. CERCINE [Concomitant]
     Active Substance: DIAZEPAM
     Indication: ANXIETY
     Dosage: UNK
     Route: 048
     Dates: start: 20130529
  45. ASCATE [Concomitant]
     Dosage: 300 MG, DIVIDED DOSE, FREQUENCY UNKNOWN
     Route: 048
     Dates: start: 2005
  46. MUCOSTA [Concomitant]
     Active Substance: REBAMIPIDE
     Indication: BACK PAIN
     Dosage: 200 MG, AS NEEDED
     Route: 048
  47. RASILEZ [Concomitant]
     Active Substance: ALISKIREN
     Dosage: DIVIDED DOSE FREQUENCY UNKNOWN
     Route: 048
  48. MIANSERIN HYDROCHLORIDE [Concomitant]
     Active Substance: MIANSERIN HYDROCHLORIDE
     Indication: INSOMNIA
     Dosage: 10 MG, UNK
     Route: 048
     Dates: start: 201012, end: 201111

REACTIONS (12)
  - Fall [Recovering/Resolving]
  - Oedema [Recovering/Resolving]
  - Subarachnoid haemorrhage [Recovered/Resolved]
  - Lymphocyte count increased [Recovered/Resolved]
  - Thrombocytopenia [Recovered/Resolved]
  - Insomnia [Recovering/Resolving]
  - Malignant hypertension [Not Recovered/Not Resolved]
  - Neutrophil count decreased [Recovered/Resolved]
  - Anxiety [Recovering/Resolving]
  - Oedema [Recovered/Resolved]
  - Dyslipidaemia [Recovered/Resolved with Sequelae]
  - Abdominal discomfort [Recovering/Resolving]

NARRATIVE: CASE EVENT DATE: 201105
